FAERS Safety Report 4917637-3 (Version None)
Quarter: 2006Q1

REPORT INFORMATION
  Report Type: 
  Country: None (occurrence: None)
  Receive Date: 20060221
  Receipt Date: 20050923
  Transmission Date: 20060701
  Serious: Yes (Hospitalization, Other)
  Sender: FDA-Public Use
  Company Number: US-MERCK-0509USA03966

PATIENT
  Age: 73 Year
  Sex: Female
  Weight: 68 kg

DRUGS (11)
  1. VIOXX [Suspect]
     Indication: PAIN IN EXTREMITY
     Route: 048
     Dates: start: 20010516, end: 20040401
  2. VIOXX [Suspect]
     Indication: BACK PAIN
     Route: 048
     Dates: start: 20010516, end: 20040401
  3. LOPRESSOR [Concomitant]
     Indication: HYPERTENSION
     Route: 065
  4. TRIAMTERENE [Concomitant]
     Indication: BLOOD PRESSURE
     Route: 065
  5. TRIAMTERENE [Concomitant]
     Indication: FLUID RETENTION
     Route: 065
  6. PREVACID [Concomitant]
     Indication: GASTROOESOPHAGEAL REFLUX DISEASE
     Route: 065
  7. SYNTHROID [Concomitant]
     Indication: HYPOTHYROIDISM
     Route: 065
  8. ZOCOR [Concomitant]
     Indication: BLOOD CHOLESTEROL INCREASED
     Route: 048
     Dates: start: 20020625
  9. LORAZEPAM [Concomitant]
     Indication: ANXIETY
     Route: 065
  10. ASPIRIN [Concomitant]
     Route: 065
  11. MECLIZINE [Concomitant]
     Route: 065

REACTIONS (29)
  - ATRIAL FIBRILLATION [None]
  - BACK PAIN [None]
  - BALANCE DISORDER [None]
  - CARDIOVASCULAR DISORDER [None]
  - CELLULITIS [None]
  - CEREBELLAR INFARCTION [None]
  - CEREBRAL INFARCTION [None]
  - CEREBRAL ISCHAEMIA [None]
  - CEREBROVASCULAR ACCIDENT [None]
  - CHEST PAIN [None]
  - CHRONIC OBSTRUCTIVE PULMONARY DISEASE [None]
  - CONSTIPATION [None]
  - CRYING [None]
  - DEPRESSION [None]
  - DISTURBANCE IN ATTENTION [None]
  - DIZZINESS [None]
  - DRY EYE [None]
  - DRY SKIN [None]
  - EMPHYSEMA [None]
  - HYPERLIPIDAEMIA [None]
  - HYPOKALAEMIA [None]
  - INTRACRANIAL ANEURYSM [None]
  - OBESITY [None]
  - SLEEP DISORDER [None]
  - TEMPERATURE INTOLERANCE [None]
  - TINNITUS [None]
  - TRANSIENT ISCHAEMIC ATTACK [None]
  - VERTIGO [None]
  - VISION BLURRED [None]
